FAERS Safety Report 6290869-0 (Version None)
Quarter: 2009Q3

REPORT INFORMATION
  Report Type: 
  Country: None (occurrence: None)
  Receive Date: 20090728
  Receipt Date: 20090728
  Transmission Date: 20100115
  Serious: Yes (Hospitalization)
  Sender: FDA-Public Use
  Company Number: None

PATIENT
  Sex: Male
  Weight: 47.1 kg

DRUGS (16)
  1. CYTARABINE 880 MG [Suspect]
     Dates: start: 20090717
  2. METHOTREXATE 45 MG [Suspect]
     Dates: start: 20090722
  3. VINCRISTINE SULFATE [Suspect]
     Dates: start: 20090722
  4. CYCLOPHOSPHAMIDE 1440 MG [Suspect]
     Dates: start: 20090707
  5. MERCAPTOPURINE 1200 MG [Suspect]
     Dates: start: 20090720
  6. NITROUS [Concomitant]
  7. ACETAMINOPHEN [Concomitant]
  8. CEFTAZIDIME [Concomitant]
  9. CELECOXIB [Concomitant]
  10. DIPHENDRAMINE [Concomitant]
  11. EPINEPHRINE [Concomitant]
  12. GADOPENTETATE DIMEGLUMINE [Concomitant]
  13. HYDROCORTISONE [Concomitant]
  14. LEUCOVORIN CALCIUM [Concomitant]
  15. ONDANSETRON [Concomitant]
  16. VANCOMYCIN [Concomitant]

REACTIONS (15)
  - COUGH [None]
  - DECREASED APPETITE [None]
  - DRUG TOXICITY [None]
  - DYSKINESIA [None]
  - GAIT DISTURBANCE [None]
  - HEADACHE [None]
  - HYPERSENSITIVITY [None]
  - HYPOTENSION [None]
  - NAUSEA [None]
  - NYSTAGMUS [None]
  - PYREXIA [None]
  - SPEECH DISORDER [None]
  - THERAPEUTIC RESPONSE DECREASED [None]
  - TIC [None]
  - VOMITING [None]
